FAERS Safety Report 5729067-5 (Version None)
Quarter: 2008Q2

REPORT INFORMATION
  Report Type: 
  Country: None (occurrence: None)
  Receive Date: 20080505
  Receipt Date: 20080505
  Transmission Date: 20081010
  Serious: Yes (Other)
  Sender: FDA-Public Use
  Company Number: None

PATIENT
  Sex: Male
  Weight: 124.9 kg

DRUGS (2)
  1. OXCARBAZEPINE [Suspect]
     Dosage: 300MG - 3 TABS BID PO
     Route: 048
  2. TRILEPTAL [Concomitant]

REACTIONS (2)
  - CONVULSION [None]
  - PHARMACEUTICAL PRODUCT COMPLAINT [None]
